FAERS Safety Report 7994558-3 (Version None)
Quarter: 2011Q4

REPORT INFORMATION
  Report Type: 
  Country: None (occurrence: None)
  Receive Date: 20111220
  Receipt Date: 20111209
  Transmission Date: 20120403
  Serious: Yes (Hospitalization)
  Sender: FDA-Public Use
  Company Number: JP-PFIZER INC-2011272223

PATIENT
  Age: 91 Year
  Sex: Female

DRUGS (8)
  1. ENALAPRIL [Concomitant]
     Indication: CARDIAC FAILURE CHRONIC
  2. FUROSEMIDE [Concomitant]
     Indication: CONGESTIVE CARDIOMYOPATHY
  3. FUROSEMIDE [Concomitant]
     Indication: CARDIAC FAILURE CHRONIC
  4. AMIODARONE HCL [Suspect]
     Dosage: 100 MG, 1X/DAY
     Route: 065
  5. ALFACALCIDOL [Suspect]
     Indication: OSTEOPOROSIS
     Dosage: 1 UG, UNK
     Route: 048
  6. ENALAPRIL [Concomitant]
     Indication: CONGESTIVE CARDIOMYOPATHY
  7. SPIRONOLACTONE [Concomitant]
     Indication: CONGESTIVE CARDIOMYOPATHY
  8. SPIRONOLACTONE [Concomitant]
     Indication: CARDIAC FAILURE CHRONIC

REACTIONS (3)
  - ATRIOVENTRICULAR BLOCK COMPLETE [None]
  - RENAL FAILURE [None]
  - HYPERCALCAEMIA [None]
